FAERS Safety Report 8525639-3 (Version None)
Quarter: 2012Q3

REPORT INFORMATION
  Report Type: 
  Country: None (occurrence: None)
  Receive Date: 20120720
  Receipt Date: 20070626
  Transmission Date: 20120928
  Serious: Yes (Death, Other)
  Sender: FDA-Public Use
  Company Number: CO-PFIZER INC-2012172079

PATIENT
  Age: 61 Year
  Sex: Female

DRUGS (7)
  1. NIFEDIPINE [Concomitant]
     Dosage: 30 MG, 3X/DAY
  2. LOSARTAN [Concomitant]
     Dosage: 50 MG, 2X/DAY
  3. LIPITOR [Suspect]
     Dosage: 10 MG, 1X/DAY
  4. QUINAPRIL AND HYDROCHLOROTHIAZIDE [Suspect]
     Dosage: 20/12.5 MG, 2X/DAY
  5. INSULIN ZINC PROTAMINE INJECTION [Concomitant]
     Dosage: 80-100 IU/ML, 1X/DAY
  6. INSULIN ZINC PROTAMINE INJECTION [Concomitant]
     Dosage: 80-100 IU/ML, 2X/DAY
  7. ACETYLSALICYLIC ACID [Concomitant]
     Dosage: 100 MG, 1X/DAY

REACTIONS (4)
  - DYSPNOEA [None]
  - DEATH [None]
  - ANGINA PECTORIS [None]
  - OEDEMA PERIPHERAL [None]
